FAERS Safety Report 8469438-X (Version None)
Quarter: 2012Q2

REPORT INFORMATION
  Report Type: 
  Country: None (occurrence: None)
  Receive Date: 20120626
  Receipt Date: 20120617
  Transmission Date: 20120825
  Serious: Yes (Hospitalization, Other)
  Sender: FDA-Public Use
  Company Number: NZ-ABBOTT-12P-118-0939731-00

PATIENT
  Sex: Female

DRUGS (11)
  1. HUMIRA [Suspect]
     Dosage: WEEK 1 -160 MG
  2. PROMETHAZINE [Concomitant]
     Indication: PRODUCT USED FOR UNKNOWN INDICATION
     Route: 048
  3. GABAPENTIN [Concomitant]
     Indication: PRODUCT USED FOR UNKNOWN INDICATION
  4. HUMIRA [Suspect]
     Dosage: WEEK 3 -80 MG
  5. ACETAMINOPHEN [Concomitant]
     Indication: PRODUCT USED FOR UNKNOWN INDICATION
     Dosage: 4 IN ONE DAY PRN
     Route: 048
  6. BUSCOPAN [Concomitant]
     Indication: PRODUCT USED FOR UNKNOWN INDICATION
     Route: 048
  7. HUMIRA [Suspect]
     Indication: CROHN'S DISEASE
     Route: 058
     Dates: start: 20101213, end: 20120528
  8. METHADONE HCL [Concomitant]
     Indication: PRODUCT USED FOR UNKNOWN INDICATION
     Route: 048
  9. CYCLIZINE [Concomitant]
     Indication: PRODUCT USED FOR UNKNOWN INDICATION
     Route: 048
  10. ZOPICLONE [Concomitant]
     Indication: PRODUCT USED FOR UNKNOWN INDICATION
     Dosage: 3.75 MG NOCTE
     Route: 048
  11. GABAPENTIN [Concomitant]
     Dosage: 300 MG NOCTE
     Route: 048

REACTIONS (16)
  - MALAISE [None]
  - FREQUENT BOWEL MOVEMENTS [None]
  - OEDEMA PERIPHERAL [None]
  - ABDOMINAL PAIN [None]
  - EXERCISE TOLERANCE DECREASED [None]
  - PLEURAL EFFUSION [None]
  - PLEURISY [None]
  - ARTHRITIS [None]
  - PERICARDITIS [None]
  - LUPUS-LIKE SYNDROME [None]
  - POLYARTHRITIS [None]
  - MUSCULOSKELETAL PAIN [None]
  - DYSPNOEA [None]
  - WEIGHT DECREASED [None]
  - CHEST PAIN [None]
  - PERICARDIAL EFFUSION [None]
